FAERS Safety Report 4942663-8 (Version None)
Quarter: 2006Q1

REPORT INFORMATION
  Report Type: 
  Country: None (occurrence: None)
  Receive Date: 20060309
  Receipt Date: 20060224
  Transmission Date: 20060701
  Serious: Yes (Other)
  Sender: FDA-Public Use
  Company Number: 2006026083

PATIENT
  Age: 52 Year
  Sex: Female

DRUGS (14)
  1. SULPERAZON (SULBACTAM, CEFOPERAZONE) [Suspect]
     Indication: BACTERIAL INFECTION
     Dosage: 2 GRAM, INTRAVENOUS
     Route: 042
     Dates: start: 20060204, end: 20060210
  2. GLYCEOL (FRUCTOSE, GLYCEROL) [Concomitant]
  3. PIPERACILLIN SODIUM [Concomitant]
  4. WARFARIN SODIUM [Concomitant]
  5. NORVASC [Concomitant]
  6. MICARDIS [Concomitant]
  7. FAMOTIDINE [Concomitant]
  8. VALPROATE SODIUM [Concomitant]
  9. ASPARA K (ASPARTATE POTASSIUM) [Concomitant]
  10. DIGOXIN [Concomitant]
  11. VOLTAREN [Concomitant]
  12. NEO-MINOPHAGEN C (GLYCYRRHIZIC ACID, AMMONIUM SALT) [Concomitant]
  13. MICAFUNGIN (MICAFUNGIN) [Concomitant]
  14. LASIX [Concomitant]

REACTIONS (3)
  - ENANTHEMA [None]
  - LOSS OF CONSCIOUSNESS [None]
  - TOXIC EPIDERMAL NECROLYSIS [None]
